FAERS Safety Report 7222467-6 (Version None)
Quarter: 2010Q4

REPORT INFORMATION
  Report Type: 
  Country: None (occurrence: None)
  Receive Date: 20101227
  Receipt Date: 20101126
  Transmission Date: 20110411
  Serious: Yes (Other)
  Sender: FDA-Public Use
  Company Number: CA-145125

PATIENT
  Age: 75 Year
  Sex: Female

DRUGS (2)
  1. WINRHO [Suspect]
     Dosage: (4000 ?G INTRAVENOUS (NOT OTHERWISE SPECIFIED))
     Route: 042
  2. GAMUNEX [Concomitant]

REACTIONS (3)
  - ANTIBODY TEST POSITIVE [None]
  - COOMBS DIRECT TEST POSITIVE [None]
  - HAEMOLYTIC TRANSFUSION REACTION [None]
